FAERS Safety Report 20547804 (Version 1)
Quarter: 2022Q1

REPORT INFORMATION
  Report Type: Report from Study
  Country: NL (occurrence: NL)
  Receive Date: 20220303
  Receipt Date: 20220303
  Transmission Date: 20220424
  Serious: Yes (Other)
  Sender: FDA-Public Use
  Company Number: NL-NOVARTISPH-NVSC2022NL049391

PATIENT
  Sex: Male

DRUGS (1)
  1. ASCIMINIB [Suspect]
     Active Substance: ASCIMINIB
     Indication: Leukaemia
     Dosage: UNK
     Route: 065

REACTIONS (2)
  - Leukopenia [Unknown]
  - Thrombocytopenia [Unknown]
